FAERS Safety Report 9780743 (Version 2)
Quarter: 2014Q1

REPORT INFORMATION
  Report Type: Report from Study
  Country: US (occurrence: US)
  Receive Date: 20131224
  Receipt Date: 20140107
  Transmission Date: 20141002
  Serious: Yes (Death, Other)
  Sender: FDA-Public Use
  Company Number: PHEH2013US026111

PATIENT
  Sex: Male

DRUGS (1)
  1. AFINITOR [Suspect]
     Indication: RENAL CANCER
     Dosage: 10 MG, QD
     Route: 048

REACTIONS (4)
  - Oncologic complication [Fatal]
  - Malignant neoplasm progression [Fatal]
  - Lung infiltration [Unknown]
  - Failure to thrive [Unknown]
